FAERS Safety Report 5015236-9 (Version None)
Quarter: 2006Q2

REPORT INFORMATION
  Report Type: 
  Country: None (occurrence: None)
  Receive Date: 20060426
  Receipt Date: 20051012
  Transmission Date: 20061013
  Serious: No
  Sender: FDA-Public Use
  Company Number: US147874

PATIENT
  Sex: Male

DRUGS (27)
  1. SENSIPAR [Suspect]
     Indication: HYPERPARATHYROIDISM SECONDARY
     Dosage: 30 GM, 1 IN 1 DAYS, PO
     Route: 048
     Dates: start: 20050719
  2. PARICALCITOL [Suspect]
  3. SEVELAMER HCL [Concomitant]
  4. EPOGEN [Concomitant]
  5. ALLOPURINOL [Concomitant]
  6. AMIODARONE HCL [Concomitant]
  7. ASPIRIN [Concomitant]
  8. AMITRIPTYLINE HCL [Concomitant]
  9. CEFAZOLIN SODIUM [Concomitant]
  10. ATENOLOL [Concomitant]
  11. LORAZEPAM [Concomitant]
  12. DIPHENHYDRAMINE HYDROCHLORIDE [Concomitant]
  13. WARFARIN SODIUM [Concomitant]
  14. LOSARTAN POTASSIUM [Concomitant]
  15. CLONAZEPAM [Concomitant]
  16. DIGOXIN [Concomitant]
  17. GEMFIBROZIL [Concomitant]
  18. NEPHRO-CAPS [Concomitant]
  19. GABAPENTIN [Concomitant]
  20. PANTOPRAZOLE SODIUM [Concomitant]
  21. SIMVASTATIN [Concomitant]
  22. LISINOPRIL [Concomitant]
  23. CETIRIZINE HCL [Concomitant]
  24. TOCOPHEROL CONCENTRATE CAP [Concomitant]
  25. FENOFIBRATE [Concomitant]
  26. IRON DEXTRAN [Concomitant]
  27. VENOFER [Concomitant]

REACTIONS (1)
  - BLOOD PARATHYROID HORMONE INCREASED [None]
